FAERS Safety Report 11917931 (Version 2)
Quarter: 2016Q1

REPORT INFORMATION
  Report Type: Spontaneous
  Country: US (occurrence: US)
  Receive Date: 20160114
  Receipt Date: 20160324
  Transmission Date: 20160526
  Serious: No
  Sender: FDA-Public Use
  Company Number: US-PFIZER INC-2016011568

PATIENT
  Age: 58 Year
  Sex: Male

DRUGS (2)
  1. LYRICA [Suspect]
     Active Substance: PREGABALIN
     Indication: GROIN PAIN
     Dosage: 300 MG, 2X/DAY
     Dates: start: 20150901
  2. LYRICA [Suspect]
     Active Substance: PREGABALIN
     Indication: COGNITIVE DISORDER

REACTIONS (3)
  - Impaired work ability [Unknown]
  - Drug ineffective for unapproved indication [Unknown]
  - Memory impairment [Unknown]

NARRATIVE: CASE EVENT DATE: 20150901
